FAERS Safety Report 15455111 (Version 2)
Quarter: 2018Q4

REPORT INFORMATION
  Report Type: Spontaneous
  Country: US (occurrence: US)
  Receive Date: 20181002
  Receipt Date: 20181003
  Transmission Date: 20190204
  Serious: No
  Sender: FDA-Public Use
  Company Number: US-BAYER-2018-181529

PATIENT
  Age: 16 Year
  Sex: Female

DRUGS (1)
  1. MIRENA [Suspect]
     Active Substance: LEVONORGESTREL
     Dosage: 20 MCG/24HR, CONT
     Route: 015
     Dates: start: 20180815

REACTIONS (5)
  - Feeling abnormal [None]
  - Ocular discomfort [None]
  - Blood pressure increased [None]
  - Costochondritis [None]
  - Chest pain [None]

NARRATIVE: CASE EVENT DATE: 2018
